FAERS Safety Report 20868857 (Version 1)
Quarter: 2022Q2

REPORT INFORMATION
  Report Type: Spontaneous
  Country: US (occurrence: US)
  Receive Date: 20220524
  Receipt Date: 20220524
  Transmission Date: 20220720
  Serious: No
  Sender: FDA-Public Use
  Company Number: US-PFIZER INC-202200661450

PATIENT
  Age: 84 Year
  Sex: Female
  Weight: 95.71 kg

DRUGS (5)
  1. GABAPENTIN [Suspect]
     Active Substance: GABAPENTIN
     Indication: Rheumatoid arthritis
     Dosage: 100 MG, 3X/DAY(100MG TABLET BY MOUTH THREE TIMES A DAY)
     Route: 048
     Dates: start: 2021
  2. GABAPENTIN [Suspect]
     Active Substance: GABAPENTIN
     Indication: Thinking abnormal
  3. GABAPENTIN [Suspect]
     Active Substance: GABAPENTIN
     Indication: Bone cancer metastatic
  4. GABAPENTIN [Suspect]
     Active Substance: GABAPENTIN
     Indication: Neoplasm malignant
  5. HYDROMORPHONE [Concomitant]
     Active Substance: HYDROMORPHONE
     Indication: Pain
     Dosage: 2 MG, 1X/DAY

REACTIONS (3)
  - Product dispensing error [Unknown]
  - Poor quality product administered [Unknown]
  - COVID-19 [Unknown]
